FAERS Safety Report 7585929-8 (Version None)
Quarter: 2011Q3

REPORT INFORMATION
  Report Type: 
  Country: None (occurrence: None)
  Receive Date: 20110701
  Receipt Date: 20110622
  Transmission Date: 20111222
  Serious: Yes (Other)
  Sender: FDA-Public Use
  Company Number: FR-NOVOPROD-327450

PATIENT
  Age: 55 Year
  Sex: Male
  Weight: 98 kg

DRUGS (6)
  1. FENOFIBRATE [Concomitant]
     Indication: DYSLIPIDAEMIA
     Dosage: 300 MG, QD
     Route: 048
  2. VICTOZA [Suspect]
     Indication: TYPE 2 DIABETES MELLITUS
     Dosage: 1.2 MG, QD
     Route: 058
     Dates: start: 20110202, end: 20110324
  3. PIOGLITAZONE HYDROCHLORIDE/METFORMIN HYDROCHLORIDE [Concomitant]
     Indication: TYPE 2 DIABETES MELLITUS
     Dosage: 865 MG, QD
     Route: 048
  4. ASPIRIN [Concomitant]
     Indication: PROPHYLAXIS
     Dosage: 75 MG, QD
     Route: 048
  5. DIAMICRON [Concomitant]
     Indication: DIABETES MELLITUS
     Dosage: 60 MG, QD
     Route: 048
  6. ESCITALOPRAM OXALATE [Concomitant]
     Indication: DEPRESSION
     Dosage: 15 MG, QD
     Route: 048

REACTIONS (4)
  - ERYTHEMA [None]
  - SKIN INDURATION [None]
  - GLYCOSYLATED HAEMOGLOBIN INCREASED [None]
  - INJECTION SITE NODULE [None]
